FAERS Safety Report 4589743-7 (Version None)
Quarter: 2005Q1

REPORT INFORMATION
  Report Type: 
  Country: None (occurrence: None)
  Receive Date: 20050217
  Receipt Date: 20050204
  Transmission Date: 20050727
  Serious: Yes (Life-Threatening, Hospitalization, Other)
  Sender: FDA-Public Use
  Company Number: 2005JP000265

PATIENT
  Age: 23 Year
  Sex: Female

DRUGS (3)
  1. PROGRAF [Suspect]
     Indication: LIVER TRANSPLANT
     Dosage: INTRAVENOUS
     Route: 042
     Dates: start: 20050125, end: 20050201
  2. PRODIF INTRAVENOUS SOLUTION (FLUCONAZOLE) INJECTION [Suspect]
     Dosage: INTRAVENOUS
     Route: 042
     Dates: start: 20050119, end: 20050128
  3. TAZOCIN (PIPERACILLIN SODUIM, TAZOBACTAM SODIUM) INJECTION [Concomitant]

REACTIONS (6)
  - ABDOMINAL HAEMATOMA [None]
  - CONVULSION [None]
  - DRUG INTERACTION [None]
  - DRUG LEVEL INCREASED [None]
  - RENAL IMPAIRMENT [None]
  - THROMBOTIC THROMBOCYTOPENIC PURPURA [None]
